FAERS Safety Report 4572556-X (Version None)
Quarter: 2005Q1

REPORT INFORMATION
  Report Type: 
  Country: None (occurrence: None)
  Receive Date: 20050208
  Receipt Date: 20050127
  Transmission Date: 20050727
  Serious: Yes (Other)
  Sender: FDA-Public Use
  Company Number: US-JNJFOC-20050200109

PATIENT
  Sex: Female

DRUGS (19)
  1. INFLIXIMAB [Suspect]
     Indication: RHEUMATOID ARTHRITIS
     Route: 042
  2. CELEBREX [Concomitant]
  3. EVOXAC [Concomitant]
  4. PREVACID [Concomitant]
  5. ESTRATEST [Concomitant]
  6. ESTRATEST [Concomitant]
  7. ENBREL [Concomitant]
  8. DARVOCET [Concomitant]
  9. DARVOCET [Concomitant]
     Dosage: 3-5 TABLETS DAILY
  10. ALLEGRA [Concomitant]
  11. METHOTREXATE [Concomitant]
  12. MULTI-VITAMIN [Concomitant]
  13. MULTI-VITAMIN [Concomitant]
  14. MULTI-VITAMIN [Concomitant]
  15. MULTI-VITAMIN [Concomitant]
  16. MULTI-VITAMIN [Concomitant]
  17. MULTI-VITAMIN [Concomitant]
  18. MULTI-VITAMIN [Concomitant]
  19. MULTI-VITAMIN [Concomitant]

REACTIONS (1)
  - SKIN CANCER [None]
